FAERS Safety Report 7978850-4 (Version None)
Quarter: 2011Q4

REPORT INFORMATION
  Report Type: 
  Country: None (occurrence: None)
  Receive Date: 20111214
  Receipt Date: 20111205
  Transmission Date: 20120403
  Serious: Yes (Hospitalization, Other)
  Sender: FDA-Public Use
  Company Number: TR-PFIZER INC-2011295669

PATIENT
  Age: 13 Year
  Sex: Female

DRUGS (7)
  1. CYTARABINE [Suspect]
     Indication: T-CELL LYMPHOMA
     Dosage: 100 MG/M2, UNK
  2. CYCLOPHOSPHAMIDE [Suspect]
  3. VINCRISTINE SULFATE [Suspect]
  4. DOXORUBICIN HCL [Suspect]
     Indication: T-CELL LYMPHOMA
  5. METHOTREXATE SODIUM [Suspect]
     Indication: T-CELL LYMPHOMA
     Dosage: 5000 MG/M2, UNK
  6. ETOPOSIDE [Suspect]
     Indication: T-CELL LYMPHOMA
     Dosage: 100 MG/M2, UNK
  7. PREDNISONE [Suspect]
     Indication: T-CELL LYMPHOMA

REACTIONS (13)
  - INTRA-ABDOMINAL HAEMORRHAGE [None]
  - PRURITUS GENERALISED [None]
  - HYPOKALAEMIA [None]
  - TUMOUR LYSIS SYNDROME [None]
  - PYREXIA [None]
  - HYPOTENSION [None]
  - FUNGAL OESOPHAGITIS [None]
  - MUCOSAL INFLAMMATION [None]
  - FEBRILE NEUTROPENIA [None]
  - OXYGEN SATURATION DECREASED [None]
  - PLEURAL HAEMORRHAGE [None]
  - HYPERAEMIA [None]
  - BREATH SOUNDS ABNORMAL [None]
